FAERS Safety Report 9146349 (Version 4)
Quarter: 2013Q2

REPORT INFORMATION
  Report Type: Spontaneous
  Country: JP (occurrence: JP)
  Receive Date: 20130307
  Receipt Date: 20130508
  Transmission Date: 20140414
  Serious: Yes (Hospitalization)
  Sender: FDA-Public Use
  Company Number: JP-ABBOTT-13P-087-1058271-00

PATIENT
  Age: 49 Year
  Sex: Male

DRUGS (7)
  1. HUMIRA [Suspect]
     Indication: PSORIASIS
     Route: 058
     Dates: start: 20120613, end: 20120613
  2. HUMIRA [Suspect]
  3. ISONIAZID [Concomitant]
     Indication: TUBERCULIN TEST POSITIVE
  4. DIFLUPREDNATE [Concomitant]
     Indication: PSORIASIS
     Dosage: EVERY NIGHT
     Route: 061
     Dates: start: 20120515
  5. CALCIPOTRIOL [Concomitant]
     Indication: PSORIASIS
     Dosage: EVERY NIGHT
     Route: 061
     Dates: start: 20120515
  6. HYDROCORTISONE BUTYRATE PROPIONATE [Concomitant]
     Indication: PSORIASIS
     Dosage: EVERY NIGHT
     Route: 061
     Dates: start: 20120515
  7. BEPOTASTINE BESILATE [Concomitant]
     Indication: PSORIASIS
     Route: 048
     Dates: start: 20120515, end: 20120627

REACTIONS (2)
  - Liver abscess [Recovering/Resolving]
  - Tuberculin test positive [Unknown]
